FAERS Safety Report 8853737 (Version 1)
Quarter: 2012Q4

REPORT INFORMATION
  Report Type: 
  Country: BR (occurrence: BR)
  Receive Date: 20121022
  Receipt Date: 20121022
  Transmission Date: 20130627
  Serious: Yes (Other)
  Sender: FDA-Public Use
  Company Number: BR-NOVOPROD-361926

PATIENT
  Age: 75 Year
  Sex: Female

DRUGS (1)
  1. NOVOLIN N [Suspect]
     Indication: TYPE 1 DIABETES MELLITUS
     Dosage: UNKNOWN
     Route: 065

REACTIONS (1)
  - Diabetic neuropathy [Unknown]
